FAERS Safety Report 5192009-8 (Version None)
Quarter: 2006Q4

REPORT INFORMATION
  Report Type: 
  Country: None (occurrence: None)
  Receive Date: 20061227
  Receipt Date: 20061128
  Transmission Date: 20070319
  Serious: Yes (Hospitalization)
  Sender: FDA-Public Use
  Company Number: AU-NOVOPROD-259118

PATIENT
  Sex: Female

DRUGS (1)
  1. ACTRAPID [Suspect]
     Indication: DRUG USE FOR UNKNOWN INDICATION
     Dosage: UNK U, QD
     Route: 058

REACTIONS (2)
  - FALL [None]
  - HYPOGLYCAEMIA [None]
